FAERS Safety Report 6870676-8 (Version None)
Quarter: 2010Q3

REPORT INFORMATION
  Report Type: 
  Country: None (occurrence: None)
  Receive Date: 20100723
  Receipt Date: 20100716
  Transmission Date: 20110219
  Serious: Yes (Disabling)
  Sender: FDA-Public Use
  Company Number: US-BAYER-201014721BCC

PATIENT
  Age: 36 Year
  Sex: Female
  Weight: 75 kg

DRUGS (8)
  1. ASPIRIN [Suspect]
     Indication: THROMBOSIS PROPHYLAXIS
     Dosage: TOTAL DAILY DOSE: 81 MG  UNIT DOSE: 81 MG
     Route: 048
     Dates: start: 20050601, end: 20080901
  2. PLAVIX [Suspect]
     Indication: THROMBOSIS PROPHYLAXIS
     Dosage: TOTAL DAILY DOSE: 75 MG  UNIT DOSE: 75 MG
     Route: 048
     Dates: start: 20050601, end: 20080901
  3. ORTHO EVRA [Concomitant]
     Indication: CONTRACEPTION
  4. VICODIN [Concomitant]
  5. EFFEXOR [Concomitant]
     Indication: DEPRESSION
  6. LYRICA [Concomitant]
     Indication: PAIN
  7. PROPOXYPHENE HCL [Concomitant]
     Indication: PAIN
  8. UNSPECIFIED ANTIDEPRESSANT [Concomitant]

REACTIONS (13)
  - CONTUSION [None]
  - COUGH [None]
  - DIZZINESS [None]
  - DRY MOUTH [None]
  - DYSPHONIA [None]
  - DYSPNOEA [None]
  - EPISTAXIS [None]
  - GAIT DISTURBANCE [None]
  - HEADACHE [None]
  - HEMIPARESIS [None]
  - MENORRHAGIA [None]
  - PAIN IN EXTREMITY [None]
  - VASODILATATION [None]
